FAERS Safety Report 6371250-2 (Version None)
Quarter: 2009Q3

REPORT INFORMATION
  Report Type: 
  Country: None (occurrence: None)
  Receive Date: 20090923
  Receipt Date: 20071116
  Transmission Date: 20100115
  Serious: Yes (Other)
  Sender: FDA-Public Use
  Company Number: US-ASTRAZENECA-2007UW05956

PATIENT
  Age: 408 Month
  Sex: Male
  Weight: 139.7 kg

DRUGS (22)
  1. SEROQUEL [Suspect]
     Indication: SLEEP DISORDER
     Route: 048
     Dates: start: 20020101, end: 20040813
  2. SEROQUEL [Suspect]
     Route: 048
     Dates: start: 20030711
  3. MIRTAZAPINE [Concomitant]
     Dates: start: 20030731
  4. OXYCONTIN [Concomitant]
     Dosage: 10 MG TWO IN THE MORNING, ONE TABLET IN THE EVENING
     Dates: start: 20030331
  5. RANITIDINE [Concomitant]
     Dates: start: 20030816
  6. PROPRANOLOL [Concomitant]
     Dates: start: 20030422
  7. VOLMAX [Concomitant]
     Dates: start: 20030612
  8. ACCUPRIL [Concomitant]
     Dates: start: 20030422
  9. WARFARIN NA [Concomitant]
     Dates: start: 20030422
  10. ACTOS [Concomitant]
     Dosage: 30 MG, 45 MG DAILY
     Route: 048
     Dates: start: 20030310
  11. GLUCOVANCE [Concomitant]
     Dosage: 5 / 500 TWO FOR TWO TIMES A DAY
     Dates: start: 20030331
  12. ZETIA [Concomitant]
     Dates: start: 20030331
  13. ASPIRIN [Concomitant]
     Dates: start: 20040302
  14. PLAVIX [Concomitant]
     Dates: start: 20040302
  15. METOPROLOL TARTRATE [Concomitant]
     Dates: start: 20040302
  16. TRICOR [Concomitant]
     Dates: start: 20040302
  17. ZOCOR [Concomitant]
     Dates: start: 20040302
  18. AMARYL [Concomitant]
     Dates: start: 20040302
  19. NEURONTIN [Concomitant]
     Dates: start: 20070503
  20. PROSOM [Concomitant]
     Dates: start: 20070502
  21. XENICAL [Concomitant]
     Dates: start: 20020422
  22. INSULIN [Concomitant]
     Dates: start: 20040302

REACTIONS (4)
  - DIABETES MELLITUS [None]
  - DIABETES MELLITUS INADEQUATE CONTROL [None]
  - HYPERGLYCAEMIA [None]
  - TYPE 2 DIABETES MELLITUS [None]
